FAERS Safety Report 4467103-7 (Version None)
Quarter: 2004Q4

REPORT INFORMATION
  Report Type: 
  Country: None (occurrence: None)
  Receive Date: 20041004
  Receipt Date: 20041004
  Transmission Date: 20050328
  Serious: Yes (Hospitalization)
  Sender: FDA-Public Use
  Company Number: None

PATIENT
  Age: 57 Year
  Sex: Female
  Weight: 127.9144 kg

DRUGS (3)
  1. TAXOL [Suspect]
  2. DOXIL [Suspect]
  3. CARBOPLATIN [Suspect]

REACTIONS (3)
  - CHEST PAIN [None]
  - PALLOR [None]
  - RESPIRATION ABNORMAL [None]
